FAERS Safety Report 5235482-9 (Version None)
Quarter: 2007Q1

REPORT INFORMATION
  Report Type: 
  Country: None (occurrence: None)
  Receive Date: 20070208
  Receipt Date: 20070208
  Transmission Date: 20070707
  Serious: Yes (Other)
  Sender: FDA-Public Use
  Company Number: None

PATIENT
  Age: 28 Year
  Sex: Male

DRUGS (1)
  1. METFORMIN HCL [Suspect]
     Dates: start: 20070206, end: 20070206

REACTIONS (2)
  - HYPOAESTHESIA [None]
  - PARAESTHESIA [None]
